FAERS Safety Report 8189420 (Version 2)
Quarter: 2012Q4

REPORT INFORMATION
  Report Type: 
  Country: US (occurrence: US)
  Receive Date: 20111019
  Receipt Date: 20121121
  Transmission Date: 20130627
  Serious: No
  Sender: FDA-Public Use
  Company Number: US-BRISTOL-MYERS SQUIBB COMPANY-15523079

PATIENT
  Sex: Female

DRUGS (1)
  1. AVALIDE TABS 150MG/12.5MG [Suspect]
     Dosage: 1Df:150/12.5 mg
taken last year

REACTIONS (1)
  - Hypertension [Unknown]
